FAERS Safety Report 7991599-7 (Version None)
Quarter: 2011Q4

REPORT INFORMATION
  Report Type: 
  Country: None (occurrence: None)
  Receive Date: 20111219
  Receipt Date: 20111020
  Transmission Date: 20120403
  Serious: No
  Sender: FDA-Public Use
  Company Number: US-ALLERGAN-1113915US

PATIENT
  Age: 77 Year
  Sex: Male

DRUGS (1)
  1. LUMIGAN [Suspect]
     Indication: GLAUCOMA
     Dosage: 1 DROP IN LEFT EYE AT 6:00PM DAILY
     Route: 047
     Dates: start: 20110901

REACTIONS (2)
  - MALAISE [None]
  - FATIGUE [None]
